FAERS Safety Report 5471422-5 (Version None)
Quarter: 2007Q3

REPORT INFORMATION
  Report Type: 
  Country: None (occurrence: None)
  Receive Date: 20070928
  Receipt Date: 20070918
  Transmission Date: 20080115
  Serious: Yes (Other)
  Sender: FDA-Public Use
  Company Number: JP-PFIZER INC-2007070464

PATIENT
  Sex: Male
  Weight: 71 kg

DRUGS (9)
  1. ZOLOFT [Suspect]
     Indication: DEPRESSION
     Dosage: DAILY DOSE:100MG
     Route: 048
  2. SIMVASTATIN [Suspect]
     Indication: HYPERLIPIDAEMIA
     Dosage: TEXT:QD
     Dates: start: 20061122, end: 20070530
  3. ROHYPNOL [Suspect]
     Indication: INSOMNIA
     Dosage: DAILY DOSE:2MG-TEXT:QD
     Route: 048
  4. ALL OTHER THERAPEUTIC PRODUCTS [Concomitant]
  5. SLEEP AID [Concomitant]
  6. PAXIL [Concomitant]
     Indication: DEPRESSION
     Route: 048
  7. AMOXAN [Concomitant]
     Route: 048
  8. TOLEDOMIN [Concomitant]
     Route: 048
  9. ZOLPIDEM [Concomitant]
     Route: 048

REACTIONS (1)
  - RHABDOMYOLYSIS [None]
